FAERS Safety Report 6974419-9 (Version None)
Quarter: 2010Q3

REPORT INFORMATION
  Report Type: 
  Country: None (occurrence: None)
  Receive Date: 20100909
  Receipt Date: 20100831
  Transmission Date: 20110219
  Serious: Yes (Other)
  Sender: FDA-Public Use
  Company Number: PHHY2010CA47368

PATIENT
  Sex: Female

DRUGS (7)
  1. ZOLEDRONIC [Suspect]
     Indication: OSTEOPOROSIS
     Dosage: 5 MG, UNK
     Dates: start: 20090514
  2. ZOLEDRONIC [Suspect]
     Dosage: 5 MG, UNK
     Dates: start: 20100831
  3. RABEPRAZOLE SODIUM [Concomitant]
     Dosage: 20 MG, QD
     Route: 048
  4. TYLENOL [Concomitant]
     Dosage: 325 MG, PRN
     Route: 048
  5. CALCIUM [Concomitant]
     Dosage: 1000 MG, QD
     Route: 048
  6. ATENOLOL [Concomitant]
     Dosage: 25 MG, QD
     Route: 048
  7. VITAMIN D3 [Concomitant]
     Dosage: 2000 U, QD
     Route: 048

REACTIONS (4)
  - ARTHRITIS [None]
  - FEMUR FRACTURE [None]
  - NASOPHARYNGITIS [None]
  - SURGERY [None]
